FAERS Safety Report 6271993-5 (Version None)
Quarter: 2009Q3

REPORT INFORMATION
  Report Type: 
  Country: None (occurrence: None)
  Receive Date: 20090713
  Receipt Date: 20090415
  Transmission Date: 20100115
  Serious: No
  Sender: FDA-Public Use
  Company Number: 2009BM000097

PATIENT
  Age: 6 Year
  Sex: Female
  Weight: 18 kg

DRUGS (2)
  1. KUVAN [Suspect]
     Indication: PHENYLKETONURIA
     Dosage: 300 MG; QD; PO, 400 MG; QD; PO
     Route: 048
     Dates: start: 20080821, end: 20090415
  2. KUVAN [Suspect]
     Indication: PHENYLKETONURIA
     Dosage: 300 MG; QD; PO, 400 MG; QD; PO
     Route: 048
     Dates: start: 20090416

REACTIONS (1)
  - AMINO ACID LEVEL INCREASED [None]
